FAERS Safety Report 10729100 (Version 1)
Quarter: 2015Q1

REPORT INFORMATION
  Report Type: Spontaneous
  Country: FR (occurrence: FR)
  Receive Date: 20150122
  Receipt Date: 20150122
  Transmission Date: 20150721
  Serious: Yes (Hospitalization, Other)
  Sender: FDA-Public Use
  Company Number: FR-GLAXOSMITHKLINE-FR2015GSK005230

PATIENT
  Age: 39 Year
  Sex: Male

DRUGS (9)
  1. TIENAM [Suspect]
     Active Substance: CILASTATIN SODIUM\IMIPENEM
     Dosage: UNK
     Route: 042
     Dates: start: 20130526, end: 20130607
  2. AZACTAM [Suspect]
     Active Substance: AZTREONAM
     Dosage: UNK
     Route: 042
     Dates: start: 20130607, end: 20130724
  3. INEXIUM [Suspect]
     Active Substance: ESOMEPRAZOLE
     Dosage: UNK
     Route: 048
     Dates: start: 20130410, end: 20130624
  4. XENETIX [Suspect]
     Active Substance: IOBITRIDOL
  5. CANCIDAS [Suspect]
     Active Substance: CASPOFUNGIN ACETATE
     Dosage: UNK
     Route: 042
     Dates: start: 201305
  6. TAZOCILLINE [Suspect]
     Active Substance: PIPERACILLIN SODIUM\TAZOBACTAM SODIUM
     Dosage: UNK
     Route: 042
     Dates: start: 20130508, end: 20130526
  7. ZOPHREN [Suspect]
     Active Substance: ONDANSETRON
  8. VANCOMYCIN [Suspect]
     Active Substance: VANCOMYCIN
     Dosage: UNK
     Route: 042
     Dates: start: 20130508, end: 20130624
  9. IOMERON [Suspect]
     Active Substance: IOMEPROL

REACTIONS (1)
  - Drug reaction with eosinophilia and systemic symptoms [Recovered/Resolved]

NARRATIVE: CASE EVENT DATE: 20130601
